FAERS Safety Report 8374892-8 (Version None)
Quarter: 2012Q2

REPORT INFORMATION
  Report Type: 
  Country: None (occurrence: None)
  Receive Date: 20120521
  Receipt Date: 20120516
  Transmission Date: 20120825
  Serious: Yes (Death)
  Sender: FDA-Public Use
  Company Number: US-CELGENEUS-163-21880-12042741

PATIENT
  Sex: Male

DRUGS (18)
  1. DEXAMETHASONE SODIUM POSPHATE [Concomitant]
     Dosage: 40 MILLIGRAM
     Route: 041
     Dates: start: 20111027
  2. MS CONTIN [Concomitant]
     Dosage: 15 MILLIGRAM
     Route: 048
     Dates: start: 20120124
  3. NORCO [Concomitant]
     Indication: PAIN
     Dosage: 10-325MG
     Route: 048
     Dates: start: 20111007
  4. BUSPAR [Concomitant]
     Dosage: 10 MILLIGRAM
     Route: 048
  5. HUMULIN 70/30 [Concomitant]
     Route: 058
  6. LISINOPRIL [Concomitant]
     Dosage: 20 MILLIGRAM
     Route: 048
  7. REVLIMID [Suspect]
     Dosage: 10 MILLIGRAM
     Route: 048
     Dates: start: 20110901
  8. ASPIRIN [Concomitant]
     Dosage: 81 MILLIGRAM
     Route: 048
  9. COREG [Concomitant]
     Dosage: 3.125 MILLIGRAM
     Route: 048
  10. METFORMIN HCL [Concomitant]
     Dosage: 500 MILLIGRAM
     Route: 048
  11. NOVOLIN R [Concomitant]
     Dosage: 100 INTERNATIONAL UNITS MILLIONS
     Route: 058
  12. VELCADE [Concomitant]
     Dosage: 1.3 MILLIGRAM/SQ. METER
     Route: 041
     Dates: start: 20111027
  13. XANAX [Concomitant]
     Dosage: .5 MILLIGRAM
     Route: 048
     Dates: start: 20111027
  14. FLOMAX [Concomitant]
     Dosage: .4 MILLIGRAM
     Route: 048
     Dates: start: 20111027
  15. REVLIMID [Suspect]
     Indication: MULTIPLE MYELOMA
     Dosage: 25 MILLIGRAM
     Route: 048
     Dates: start: 20101001
  16. REVLIMID [Suspect]
     Dosage: 10 MILLIGRAM
     Route: 048
     Dates: start: 20120101, end: 20120401
  17. ZANTAC [Concomitant]
     Dosage: 300 MILLIGRAM
     Route: 048
     Dates: start: 20111027
  18. ZYRTEC [Concomitant]
     Dosage: 10 MILLIGRAM
     Route: 048

REACTIONS (1)
  - MULTIPLE MYELOMA [None]
